FAERS Safety Report 10306803 (Version 14)
Quarter: 2018Q4

REPORT INFORMATION
  Report Type: Report from Study
  Country: US (occurrence: US)
  Receive Date: 20140715
  Receipt Date: 20181016
  Transmission Date: 20190204
  Serious: Yes (Hospitalization, Other)
  Sender: FDA-Public Use
  Company Number: US-SA-2014SA022182

PATIENT
  Age: 48 Year
  Sex: Female

DRUGS (4)
  1. TERIFLUNOMIDE. [Suspect]
     Active Substance: TERIFLUNOMIDE
     Dosage: 14 MG,QD
     Route: 048
     Dates: start: 2014
  2. TERIFLUNOMIDE. [Suspect]
     Active Substance: TERIFLUNOMIDE
     Dosage: 14 MG,QD
     Route: 048
  3. TERIFLUNOMIDE. [Suspect]
     Active Substance: TERIFLUNOMIDE
     Dosage: 14 MG,QD
     Route: 048
  4. TERIFLUNOMIDE. [Suspect]
     Active Substance: TERIFLUNOMIDE
     Indication: MULTIPLE SCLEROSIS
     Dosage: 14 MG,QD
     Route: 048
     Dates: start: 20140121

REACTIONS (13)
  - Visual impairment [Recovered/Resolved]
  - Dyspnoea [Recovered/Resolved]
  - Chest pain [Recovered/Resolved]
  - Muscle spasms [Unknown]
  - Hypoacusis [Not Recovered/Not Resolved]
  - Fall [Unknown]
  - Back pain [Unknown]
  - Product dose omission [Unknown]
  - Pain in extremity [Unknown]
  - Paraesthesia [Unknown]
  - Thrombosis [Unknown]
  - Walking disability [Not Recovered/Not Resolved]
  - Occupational therapy [Not Recovered/Not Resolved]

NARRATIVE: CASE EVENT DATE: 201402
